FAERS Safety Report 16222194 (Version 1)
Quarter: 2019Q2

REPORT INFORMATION
  Report Type: Report from Study
  Country: US (occurrence: US)
  Receive Date: 20190422
  Receipt Date: 20190422
  Transmission Date: 20190711
  Serious: Yes (Hospitalization)
  Sender: FDA-Public Use
  Company Number: PHEH2019US016198

PATIENT
  Sex: Female

DRUGS (2)
  1. COSENTYX [Suspect]
     Active Substance: SECUKINUMAB
     Indication: PSORIATIC ARTHROPATHY
     Dosage: 300 MG, (AT DAY 28 (DOSE 5) THEN EVERY 4 WEEKS)
     Route: 058
     Dates: start: 201812
  2. COSENTYX [Suspect]
     Active Substance: SECUKINUMAB
     Indication: CARDIAC FAILURE

REACTIONS (3)
  - Acute kidney injury [Unknown]
  - Product use in unapproved indication [Unknown]
  - Sepsis [Unknown]
